FAERS Safety Report 10206592 (Version 1)
Quarter: 2014Q2

REPORT INFORMATION
  Report Type: Spontaneous
  Country: US (occurrence: US)
  Receive Date: 20140530
  Receipt Date: 20140530
  Transmission Date: 20141212
  Serious: Yes (Hospitalization)
  Sender: FDA-Public Use
  Company Number: US-GLAXOSMITHKLINE-A1051089A

PATIENT
  Age: 56 Year
  Sex: Female

DRUGS (6)
  1. FLOLAN [Suspect]
     Indication: COR PULMONALE CHRONIC
     Dosage: 10NGKM CONTINUOUS
     Route: 042
     Dates: start: 20131030
  2. TEGADERM DRESSING [Suspect]
     Indication: PRODUCT USED FOR UNKNOWN INDICATION
     Route: 065
  3. DRESSING [Suspect]
     Indication: PRODUCT USED FOR UNKNOWN INDICATION
  4. ADCIRCA [Concomitant]
  5. ASPIRIN [Concomitant]
  6. XARELTO [Concomitant]

REACTIONS (6)
  - Infusion site erythema [Recovered/Resolved]
  - Infusion site pruritus [Unknown]
  - Aphonia [Unknown]
  - Application site irritation [Unknown]
  - Hospitalisation [Unknown]
  - Pain in jaw [Not Recovered/Not Resolved]
